FAERS Safety Report 5978806-7 (Version None)
Quarter: 2008Q4

REPORT INFORMATION
  Report Type: 
  Country: None (occurrence: None)
  Receive Date: 20081204
  Receipt Date: 20081125
  Transmission Date: 20090506
  Serious: Yes (Other)
  Sender: FDA-Public Use
  Company Number: PHHY2008DE19662

PATIENT
  Sex: Female

DRUGS (1)
  1. FEMARA [Suspect]
     Indication: BREAST CANCER
     Dosage: UNK
     Route: 048
     Dates: start: 20080301, end: 20080501

REACTIONS (5)
  - BREAST CANCER RECURRENT [None]
  - BREAST OPERATION [None]
  - CONCOMITANT DISEASE AGGRAVATED [None]
  - MACULAR DEGENERATION [None]
  - VISUAL ACUITY REDUCED [None]
